FAERS Safety Report 16356901 (Version 3)
Quarter: 2019Q3

REPORT INFORMATION
  Report Type: Spontaneous
  Country: US (occurrence: US)
  Receive Date: 20190527
  Receipt Date: 20190823
  Transmission Date: 20191004
  Serious: Yes (Death, Other)
  Sender: FDA-Public Use
  Company Number: US-ASTRAZENECA-2018SF34394

PATIENT
  Age: 16442 Day
  Sex: Male

DRUGS (40)
  1. PRILOSEC [Suspect]
     Active Substance: OMEPRAZOLE MAGNESIUM
     Indication: GASTROOESOPHAGEAL REFLUX DISEASE
     Route: 048
     Dates: start: 2004, end: 2013
  2. PANTOPRAZOLE [Suspect]
     Active Substance: PANTOPRAZOLE
     Indication: GASTROOESOPHAGEAL REFLUX DISEASE
     Route: 048
     Dates: start: 20110726
  3. NASONEX [Concomitant]
     Active Substance: MOMETASONE FUROATE
  4. BENICAR [Concomitant]
     Active Substance: OLMESARTAN MEDOXOMIL
  5. ALLOPURINOL. [Concomitant]
     Active Substance: ALLOPURINOL
  6. PROMETHAZINE [Concomitant]
     Active Substance: PROMETHAZINE HYDROCHLORIDE
  7. ARANESP [Concomitant]
     Active Substance: DARBEPOETIN ALFA
  8. AMLODIPINE [Concomitant]
     Active Substance: AMLODIPINE BESYLATE
     Indication: HYPERTENSION
     Dates: start: 2009
  9. PRILOSEC OTC [Concomitant]
     Active Substance: OMEPRAZOLE MAGNESIUM
  10. FUROSEMIDE. [Concomitant]
     Active Substance: FUROSEMIDE
     Indication: DIURETIC THERAPY
     Dates: start: 2009, end: 2011
  11. LOTREL [Concomitant]
     Active Substance: AMLODIPINE BESYLATE\BENAZEPRIL HYDROCHLORIDE
  12. VENTOLIN [Concomitant]
     Active Substance: ALBUTEROL SULFATE
  13. BUSPIRONE HYDROCHLORIDE. [Concomitant]
     Active Substance: BUSPIRONE HYDROCHLORIDE
  14. VERSED [Concomitant]
     Active Substance: MIDAZOLAM HYDROCHLORIDE
  15. LORATADINE. [Concomitant]
     Active Substance: LORATADINE
     Indication: MULTIPLE ALLERGIES
     Dates: start: 2009, end: 2013
  16. KLOR-CON [Concomitant]
     Active Substance: POTASSIUM CHLORIDE
  17. GABAPENTIN. [Concomitant]
     Active Substance: GABAPENTIN
  18. CLONIDINE. [Concomitant]
     Active Substance: CLONIDINE
  19. COMBIVENT [Concomitant]
     Active Substance: ALBUTEROL SULFATE\IPRATROPIUM BROMIDE
  20. IBUPROFEN. [Concomitant]
     Active Substance: IBUPROFEN
     Indication: PAIN
     Dosage: RARELY TAKEN.
  21. PRILOSEC [Suspect]
     Active Substance: OMEPRAZOLE MAGNESIUM
     Indication: GASTROOESOPHAGEAL REFLUX DISEASE
     Route: 048
     Dates: start: 2008, end: 2011
  22. KADIAN [Concomitant]
     Active Substance: MORPHINE SULFATE
  23. LOTEMAX [Concomitant]
     Active Substance: LOTEPREDNOL ETABONATE
  24. CORTROSYN [Concomitant]
     Active Substance: COSYNTROPIN
  25. NAPROXEN. [Concomitant]
     Active Substance: NAPROXEN
  26. AVINZA [Concomitant]
     Active Substance: MORPHINE SULFATE
     Indication: EXOSTOSIS
     Dates: start: 2009, end: 2011
  27. CITALOPRAM [Concomitant]
     Active Substance: CITALOPRAM HYDROBROMIDE
     Indication: DEPRESSION
     Dates: start: 2009, end: 2013
  28. DELSYM [Concomitant]
     Active Substance: DEXTROMETHORPHAN
  29. TUMS [Concomitant]
     Active Substance: CALCIUM CARBONATE
     Dates: start: 2011, end: 2019
  30. PANTOPRAZOLE [Suspect]
     Active Substance: PANTOPRAZOLE
     Indication: GASTROOESOPHAGEAL REFLUX DISEASE
     Route: 065
     Dates: start: 2011
  31. AVINZA [Concomitant]
     Active Substance: MORPHINE SULFATE
     Indication: ARTHRITIS
     Dates: start: 2009, end: 2011
  32. LIDODERM [Concomitant]
     Active Substance: LIDOCAINE
  33. PROTONIX [Concomitant]
     Active Substance: PANTOPRAZOLE SODIUM
  34. CATAPRES [Concomitant]
     Active Substance: CLONIDINE HYDROCHLORIDE
  35. PRILOSEC [Suspect]
     Active Substance: OMEPRAZOLE MAGNESIUM
     Indication: GASTROOESOPHAGEAL REFLUX DISEASE
     Dosage: OMEPRAZOLE
     Route: 065
     Dates: start: 2010, end: 2013
  36. PRILOSEC [Suspect]
     Active Substance: OMEPRAZOLE MAGNESIUM
     Indication: GASTROOESOPHAGEAL REFLUX DISEASE
     Dosage: OMEPRAZOLE
     Route: 048
     Dates: start: 20100810
  37. CLONAZEPAM. [Concomitant]
     Active Substance: CLONAZEPAM
     Indication: ANXIETY
     Dates: start: 2009, end: 2013
  38. LEXAPRO [Concomitant]
     Active Substance: ESCITALOPRAM OXALATE
  39. PROAMATINE [Concomitant]
     Active Substance: MIDODRINE HYDROCHLORIDE
  40. ZYLOPRIM [Concomitant]
     Active Substance: ALLOPURINOL

REACTIONS (6)
  - Acute kidney injury [Unknown]
  - End stage renal disease [Not Recovered/Not Resolved]
  - Nephrogenic anaemia [Unknown]
  - Renal failure [Fatal]
  - Chronic kidney disease [Not Recovered/Not Resolved]
  - Nephropathy [Unknown]

NARRATIVE: CASE EVENT DATE: 20110607
